FAERS Safety Report 9377664 (Version 3)
Quarter: 2013Q3

REPORT INFORMATION
  Report Type: Report from Study
  Country: SG (occurrence: SG)
  Receive Date: 20130701
  Receipt Date: 20130723
  Transmission Date: 20140515
  Serious: Yes (Life-Threatening, Hospitalization, Other)
  Sender: FDA-Public Use
  Company Number: SG-009507513-1306SGP014522

PATIENT
  Age: 64 Year
  Sex: Male
  Weight: 73.6 kg

DRUGS (16)
  1. EZETIMIBE (+) SIMVASTATIN [Suspect]
     Indication: ACUTE CORONARY SYNDROME
     Dosage: 10/40 MG, QD
     Route: 048
     Dates: start: 20061124
  2. ASPIRIN [Suspect]
     Dosage: 100 MG OM
     Route: 048
     Dates: start: 20061123, end: 20130612
  3. PONSTAN [Suspect]
     Dosage: 250 MG TDS
     Route: 048
     Dates: start: 20111217
  4. MAXOLON [Concomitant]
     Dosage: 10 MG TSD/PRN
     Route: 048
     Dates: start: 20130612
  5. SANGOBION (FERROUS GLUCONATE (+) VITAMIN B COMPLEX) [Concomitant]
     Dosage: 1 CAP, BID
     Route: 048
     Dates: start: 20130612
  6. METFORMIN HYDROCHLORIDE [Concomitant]
     Dosage: 850 MG, BID
     Route: 048
     Dates: start: 20061123
  7. BISOPROLOL [Concomitant]
     Dosage: 5 MG OM
     Route: 048
     Dates: start: 20120313
  8. FAMOTIDINE [Concomitant]
     Dosage: 20MG, BID
     Route: 048
     Dates: start: 20070316
  9. ENALAPRIL MALEATE [Concomitant]
     Dosage: 15MG, BID
     Route: 048
     Dates: start: 20080717
  10. AMLODIPINE [Concomitant]
     Dosage: 5 MG OM
     Route: 048
     Dates: start: 20081106
  11. DIAMICRON MR [Concomitant]
     Dosage: 120MG OM
     Route: 048
     Dates: start: 20120313
  12. SPAN-K [Concomitant]
     Dosage: 1200MG TDS
     Route: 048
     Dates: start: 20130612, end: 20130613
  13. OMEPRAZOLE [Concomitant]
     Dosage: 40MG OM
     Route: 048
     Dates: start: 20130612
  14. ACETAMINOPHEN [Concomitant]
     Dosage: 2 TAB/6H, PRN
     Route: 048
     Dates: start: 20130612
  15. TRAMADOL HYDROCHLORIDE [Concomitant]
     Dosage: 50MG /8H/ PRN
     Route: 048
     Dates: start: 20130612
  16. KETOPROFEN [Concomitant]
     Dosage: 1 PATCH BD
     Route: 061
     Dates: start: 20130401

REACTIONS (2)
  - Plasma cell myeloma [Not Recovered/Not Resolved]
  - Gastritis [Recovered/Resolved]
